FAERS Safety Report 25165561 (Version 2)
Quarter: 2025Q2

REPORT INFORMATION
  Report Type: Spontaneous
  Country: FR (occurrence: FR)
  Receive Date: 20250407
  Receipt Date: 20250418
  Transmission Date: 20250717
  Serious: Yes (Hospitalization, Other)
  Sender: AUROBINDO
  Company Number: FR-AFSSAPS-NT2025000236

PATIENT
  Age: 78 Year
  Sex: Female
  Weight: 56 kg

DRUGS (5)
  1. CETIRIZINE HYDROCHLORIDE [Suspect]
     Active Substance: CETIRIZINE HYDROCHLORIDE
     Indication: Product used for unknown indication
     Route: 048
     Dates: start: 20241216
  2. BISOPROLOL [Suspect]
     Active Substance: BISOPROLOL
     Indication: Myocardial ischaemia
     Dosage: 2.5 MILLIGRAM, ONCE A DAY
     Route: 048
     Dates: start: 20241216
  3. TAHOR [Suspect]
     Active Substance: ATORVASTATIN CALCIUM
     Indication: Myocardial ischaemia
     Dosage: 80 MILLIGRAM, ONCE A DAY
     Route: 048
     Dates: start: 20241216
  4. KARDEGIC [Suspect]
     Active Substance: ASPIRIN DL-LYSINE
     Indication: Myocardial ischaemia
     Dosage: 75 MILLIGRAM, ONCE A DAY
     Route: 048
     Dates: start: 20241216
  5. TICAGRELOR [Concomitant]
     Active Substance: TICAGRELOR
     Indication: Myocardial ischaemia
     Dosage: 180 MILLIGRAM, ONCE A DAY (90MGX2/DAY)
     Route: 048
     Dates: start: 20241216, end: 20250317

REACTIONS (2)
  - Agranulocytosis [Not Recovered/Not Resolved]
  - Cholestatic liver injury [Not Recovered/Not Resolved]

NARRATIVE: CASE EVENT DATE: 20250201
